FAERS Safety Report 6918638-6 (Version None)
Quarter: 2010Q3

REPORT INFORMATION
  Report Type: 
  Country: None (occurrence: None)
  Receive Date: 20100811
  Receipt Date: 20100730
  Transmission Date: 20110219
  Serious: Yes (Other)
  Sender: FDA-Public Use
  Company Number: DE-PFIZER INC-2010096543

PATIENT
  Sex: Female

DRUGS (1)
  1. ZELDOX [Suspect]
     Indication: SCHIZOAFFECTIVE DISORDER
     Dosage: 120-160MG DAILY DOSE
     Route: 048
     Dates: start: 20100401

REACTIONS (8)
  - ABNORMAL BEHAVIOUR [None]
  - ACNE [None]
  - AGGRESSION [None]
  - ANXIETY DISORDER [None]
  - DEPRESSED MOOD [None]
  - DRUG INEFFECTIVE [None]
  - FATIGUE [None]
  - THINKING ABNORMAL [None]
